FAERS Safety Report 11888546 (Version 1)
Quarter: 2016Q1

REPORT INFORMATION
  Report Type: Spontaneous
  Country: US (occurrence: None)
  Receive Date: 20160104
  Receipt Date: 20160104
  Transmission Date: 20160526
  Serious: No
  Sender: FDA-Public Use
  Company Number: None

PATIENT

DRUGS (1)
  1. PATADAY [Suspect]
     Active Substance: OLOPATADINE HYDROCHLORIDE
     Indication: EYE IRRITATION
     Route: 047
     Dates: start: 20151230, end: 20151231

REACTIONS (4)
  - Dysgeusia [None]
  - Bronchitis [None]
  - Nasopharyngitis [None]
  - Nausea [None]

NARRATIVE: CASE EVENT DATE: 20151231
